FAERS Safety Report 4942667-5 (Version None)
Quarter: 2006Q1

REPORT INFORMATION
  Report Type: 
  Country: None (occurrence: None)
  Receive Date: 20060309
  Receipt Date: 20060222
  Transmission Date: 20060701
  Serious: Yes (Death, Other)
  Sender: FDA-Public Use
  Company Number: 2006-00103

PATIENT
  Age: 32 Year
  Sex: Female
  Weight: 83 kg

DRUGS (12)
  1. VELCADE [Suspect]
     Indication: ACUTE MYELOID LEUKAEMIA
     Dosage: 1.00  MG/M2, 2/WEEK, INTRAVENOUS
     Route: 042
     Dates: start: 20060101, end: 20060116
  2. CYTARABINE [Suspect]
     Indication: ACUTE MYELOID LEUKAEMIA
     Dosage: 2000.00 MG/M2, BID, INTRAVENOUS
     Route: 042
     Dates: start: 20060110, end: 20060116
  3. DAUNORUBICIN HCL [Suspect]
     Indication: ACUTE MYELOID LEUKAEMIA
     Dosage: 60.00 MG/M2, QD, INTRAVENOUS
     Route: 042
     Dates: start: 20060111, end: 20060113
  4. COLISTIN SULFATE (COLISTIN SULFATE) [Concomitant]
  5. ALLOPURINOL [Concomitant]
  6. HEPARIN [Concomitant]
  7. CIPROFLOXACIN [Concomitant]
  8. FLUCONAZOLE [Concomitant]
  9. LYNESTRENOL (LYNESTRENOL) [Concomitant]
  10. METHYCELLULOSE (METHYCELLULOSE) [Concomitant]
  11. SODIUM FLUORIDE (SODIUM FLUORIDE) [Concomitant]
  12. TRAMADOL HCL [Concomitant]

REACTIONS (28)
  - ACTIVATED PARTIAL THROMBOPLASTIN TIME PROLONGED [None]
  - ACUTE RESPIRATORY DISTRESS SYNDROME [None]
  - ALANINE AMINOTRANSFERASE INCREASED [None]
  - ASPARTATE AMINOTRANSFERASE INCREASED [None]
  - BLOOD ALBUMIN DECREASED [None]
  - BLOOD CALCIUM DECREASED [None]
  - BLOOD CREATININE DECREASED [None]
  - BLOOD LACTATE DEHYDROGENASE INCREASED [None]
  - C-REACTIVE PROTEIN INCREASED [None]
  - CAPILLARY LEAK SYNDROME [None]
  - CHEST PAIN [None]
  - FATIGUE [None]
  - FUNCTIONAL RESIDUAL CAPACITY DECREASED [None]
  - HAEMATOCRIT DECREASED [None]
  - HAEMOGLOBIN DECREASED [None]
  - LUNG CONSOLIDATION [None]
  - MARROW HYPERPLASIA [None]
  - PCO2 INCREASED [None]
  - PLEURAL EFFUSION [None]
  - PO2 DECREASED [None]
  - PROTEIN TOTAL DECREASED [None]
  - PROTHROMBIN TIME PROLONGED [None]
  - PULMONARY OEDEMA [None]
  - PULMONARY TOXICITY [None]
  - PYREXIA [None]
  - SEPSIS [None]
  - SKIN TOXICITY [None]
  - WHITE BLOOD CELL COUNT DECREASED [None]
